FAERS Safety Report 5879275-8 (Version None)
Quarter: 2008Q3

REPORT INFORMATION
  Report Type: 
  Country: None (occurrence: None)
  Receive Date: 20080909
  Receipt Date: 20080909
  Transmission Date: 20090109
  Serious: No
  Sender: FDA-Public Use
  Company Number: None

PATIENT
  Age: 73 Year
  Sex: Male
  Weight: 51 kg

DRUGS (1)
  1. CLARITHROMYCIN [Suspect]
     Dosage: 500 MG BID PO
     Route: 048
     Dates: start: 20080225, end: 20080811

REACTIONS (2)
  - FUNGUS CULTURE POSITIVE [None]
  - TONGUE BLACK HAIRY [None]
